FAERS Safety Report 6338886-6 (Version None)
Quarter: 2009Q3

REPORT INFORMATION
  Report Type: 
  Country: None (occurrence: None)
  Receive Date: 20090903
  Receipt Date: 20090826
  Transmission Date: 20100115
  Serious: Yes (Hospitalization, Other)
  Sender: FDA-Public Use
  Company Number: US-AMGEN-QUU361845

PATIENT
  Sex: Male

DRUGS (10)
  1. EPOGEN [Suspect]
     Indication: DIALYSIS
     Route: 058
  2. SENSIPAR [Suspect]
     Indication: HYPERPARATHYROIDISM SECONDARY
  3. PHOSLO [Concomitant]
  4. INSULIN [Concomitant]
  5. ZOCOR [Concomitant]
  6. NORVASC [Concomitant]
  7. LOPRESOR [Concomitant]
  8. ZEMPLAR [Concomitant]
  9. VENOFER [Concomitant]
  10. UNSPECIFIED VITAMINS [Concomitant]

REACTIONS (4)
  - PERIPHERAL VASCULAR DISORDER [None]
  - RETICULOCYTE COUNT ABNORMAL [None]
  - SEPSIS [None]
  - THERAPEUTIC RESPONSE DECREASED [None]
